FAERS Safety Report 4798380-0 (Version None)
Quarter: 2005Q4

REPORT INFORMATION
  Report Type: 
  Country: None (occurrence: None)
  Receive Date: 20051014
  Receipt Date: 20051005
  Transmission Date: 20060501
  Serious: Yes (Hospitalization)
  Sender: FDA-Public Use
  Company Number: PHEH2005US11125

PATIENT
  Age: 49 Year
  Sex: Female

DRUGS (5)
  1. CLOZARIL [Suspect]
     Indication: PSYCHOTIC DISORDER
     Dosage: 25 MG, QD
     Route: 048
     Dates: start: 20050501
  2. CLOZARIL [Suspect]
     Dosage: 50 MG QAM, 150MG QPM
     Route: 048
  3. CLOZARIL [Suspect]
     Dosage: 25MG QAM, 100MG QPM
     Route: 048
  4. DEPAKOTE [Concomitant]
  5. TRAZODONE [Concomitant]

REACTIONS (2)
  - DYSPNOEA [None]
  - PANIC ATTACK [None]
